FAERS Safety Report 15696157 (Version 3)
Quarter: 2019Q2

REPORT INFORMATION
  Report Type: Report from Study
  Country: CO (occurrence: CO)
  Receive Date: 20181206
  Receipt Date: 20190409
  Transmission Date: 20190711
  Serious: Yes (Hospitalization, Other)
  Sender: FDA-Public Use
  Company Number: CO-ACTELION-A-US2017-164244

PATIENT
  Age: 47 Year
  Sex: Female

DRUGS (13)
  1. ADEMPAS [Suspect]
     Active Substance: RIOCIGUAT
     Indication: PULMONARY ARTERIAL HYPERTENSION
     Dosage: UNK
     Route: 065
  2. LEVOTHYROXINE. [Concomitant]
     Active Substance: LEVOTHYROXINE
     Dosage: UNK
     Dates: start: 2015
  3. LOSARTAN. [Concomitant]
     Active Substance: LOSARTAN
     Dosage: UNK
  4. METOPROLOL. [Concomitant]
     Active Substance: METOPROLOL
     Dosage: UNK
  5. VENTAVIS [Suspect]
     Active Substance: ILOPROST
     Dosage: UNK
     Route: 055
     Dates: start: 20171114
  6. SILDENAFIL. [Concomitant]
     Active Substance: SILDENAFIL
     Dosage: UNK
  7. FUROSEMIDE. [Concomitant]
     Active Substance: FUROSEMIDE
     Dosage: UNK
  8. OXYGEN. [Concomitant]
     Active Substance: OXYGEN
  9. SPIRONOLACTONE. [Concomitant]
     Active Substance: SPIRONOLACTONE
     Dosage: UNK
     Dates: start: 2015
  10. VENTAVIS [Suspect]
     Active Substance: ILOPROST
     Indication: PULMONARY ARTERIAL HYPERTENSION
     Dosage: 2.5 MG, 6 TIMES A DAY
     Route: 055
     Dates: start: 20171114
  11. VENTAVIS [Suspect]
     Active Substance: ILOPROST
     Dosage: 5 MCG, 6ID
     Route: 055
     Dates: start: 20171214
  12. BOSENTAN. [Concomitant]
     Active Substance: BOSENTAN
     Dosage: UNK
  13. ENOXAPARIN [Concomitant]
     Active Substance: ENOXAPARIN
     Dosage: UNK

REACTIONS (15)
  - Tachycardia [Unknown]
  - Arrhythmia [Unknown]
  - Product dose omission [Unknown]
  - Burning sensation [Not Recovered/Not Resolved]
  - Influenza [Not Recovered/Not Resolved]
  - Vein rupture [Unknown]
  - Headache [Unknown]
  - Osteoarthritis [Unknown]
  - Varicose vein [Unknown]
  - Underdose [Unknown]
  - Fluid retention [Not Recovered/Not Resolved]
  - Wrong technique in product usage process [Unknown]
  - Haemoglobin decreased [Unknown]
  - Nausea [Unknown]
  - Hypotension [Unknown]

NARRATIVE: CASE EVENT DATE: 20171204
